FAERS Safety Report 22240610 (Version 1)
Quarter: 2023Q2

REPORT INFORMATION
  Report Type: Spontaneous
  Country: US (occurrence: US)
  Receive Date: 20230421
  Receipt Date: 20230421
  Transmission Date: 20230721
  Serious: Yes (Hospitalization)
  Sender: FDA-Public Use
  Company Number: US-MYLANLABS-2023M1042013

PATIENT
  Age: 68 Year
  Sex: Female

DRUGS (2)
  1. LITHIUM [Suspect]
     Active Substance: LITHIUM
     Indication: Schizoaffective disorder
     Dosage: UNK
     Route: 065
  2. LITHIUM [Suspect]
     Active Substance: LITHIUM
     Indication: Bipolar disorder

REACTIONS (5)
  - Sinus bradycardia [Recovered/Resolved]
  - Hypothyroidism [Recovered/Resolved]
  - Hyperparathyroidism [Recovered/Resolved]
  - Hypercalcaemia [Recovering/Resolving]
  - Blood creatinine increased [Unknown]
